FAERS Safety Report 23736011 (Version 3)
Quarter: 2024Q3

REPORT INFORMATION
  Report Type: Spontaneous
  Country: US (occurrence: US)
  Receive Date: 20240412
  Receipt Date: 20240718
  Transmission Date: 20241017
  Serious: No
  Sender: PHARMING GROUP
  Company Number: US-PHARMING-PHAUS2024000299

PATIENT

DRUGS (3)
  1. RUCONEST [Suspect]
     Active Substance: CONESTAT ALFA
     Indication: Hereditary angioedema
     Dosage: 3300 IU, AS NEEDED
     Route: 042
     Dates: start: 202307
  2. RUCONEST [Suspect]
     Active Substance: CONESTAT ALFA
     Dosage: 3300 IU, PRN
     Route: 042
     Dates: start: 202307
  3. RUCONEST [Suspect]
     Active Substance: CONESTAT ALFA
     Dosage: 3400 IU, AS NEEDED
     Route: 042
     Dates: start: 202307

REACTIONS (2)
  - Weight fluctuation [Unknown]
  - Underdose [Unknown]
